FAERS Safety Report 16514437 (Version 1)
Quarter: 2019Q3

REPORT INFORMATION
  Report Type: Spontaneous
  Country: CA (occurrence: CA)
  Receive Date: 20190702
  Receipt Date: 20190702
  Transmission Date: 20191004
  Serious: Yes (Other)
  Sender: FDA-Public Use
  Company Number: CA-AUROBINDO-AUR-APL-2019-037719

PATIENT

DRUGS (1)
  1. LAMOTRIGINE 25 MG TABLETS [Suspect]
     Active Substance: LAMOTRIGINE
     Indication: DEPRESSION
     Dosage: 50.0 MILLIGRAM, TWO TIMES A DAY
     Route: 048

REACTIONS (1)
  - Burning sensation [Recovered/Resolved]
